FAERS Safety Report 14013059 (Version 1)
Quarter: 2017Q3

REPORT INFORMATION
  Report Type: Spontaneous
  Country: US (occurrence: US)
  Receive Date: 20170926
  Receipt Date: 20170926
  Transmission Date: 20171128
  Serious: No
  Sender: FDA-Public Use
  Company Number: US-PFIZER INC-2017415691

PATIENT
  Age: 72 Year
  Sex: Female
  Weight: 79.38 kg

DRUGS (4)
  1. PERCOCET [Concomitant]
     Active Substance: ACETAMINOPHEN\OXYCODONE HYDROCHLORIDE
     Indication: BACK PAIN
     Dosage: [OXYCODONE 10MG] / [ACETAMINOPHEN 325 MG], 10/325 TABLET BY MOUTH 4 TIMES A DAY
     Route: 048
  2. LYRICA [Suspect]
     Active Substance: PREGABALIN
     Indication: SMALL FIBRE NEUROPATHY
     Dosage: 50MG CAPSULE BY MOUTH TWICE A DAY
     Route: 048
     Dates: start: 20170921
  3. CLONAZEPAM. [Concomitant]
     Active Substance: CLONAZEPAM
     Indication: RESTLESS LEGS SYNDROME
     Dosage: 1.5MG TABLET BY MOUTH AT BEDTIME
     Route: 048
     Dates: end: 20170923
  4. NORCO [Concomitant]
     Active Substance: ACETAMINOPHEN\HYDROCODONE BITARTRATE
     Indication: BACK PAIN
     Dosage: [HYDROCODONE BITARTRATE 10] / [ACETAMINOPHEN 325] 10/325 TABLET BY MOUTH UP TO 4 TIMES A DAY
     Route: 048

REACTIONS (1)
  - Somnolence [Recovered/Resolved]

NARRATIVE: CASE EVENT DATE: 20170923
